FAERS Safety Report 4286854-0 (Version None)
Quarter: 2004Q1

REPORT INFORMATION
  Report Type: 
  Country: None (occurrence: None)
  Receive Date: 20040206
  Receipt Date: 20031204
  Transmission Date: 20041129
  Serious: Yes (Hospitalization)
  Sender: FDA-Public Use
  Company Number: PHBS2003JP13747

PATIENT
  Age: 37 Year
  Sex: Female
  Weight: 45 kg

DRUGS (3)
  1. SANDOSTATIN [Suspect]
     Indication: THYROID STIMULATING HORMONE-PRODUCING PITUITARY TUMOUR
     Dosage: 300 UG/D
     Route: 058
     Dates: start: 19991210, end: 20000113
  2. SANDOSTATIN [Suspect]
     Dosage: 300 UG/D
     Route: 058
     Dates: start: 20020828, end: 20020908
  3. THYRADIN S [Concomitant]
     Dosage: 25 UG/D
     Route: 048
     Dates: start: 19991224, end: 20000113

REACTIONS (3)
  - BASEDOW'S DISEASE [None]
  - GOITRE [None]
  - THYROID FUNCTION TEST ABNORMAL [None]
